FAERS Safety Report 24066039 (Version 1)
Quarter: 2024Q3

REPORT INFORMATION
  Report Type: Spontaneous
  Country: US (occurrence: None)
  Receive Date: 20240709
  Receipt Date: 20240709
  Transmission Date: 20241016
  Serious: Yes (Hospitalization)
  Sender: Public
  Company Number: None

PATIENT
  Age: 45 Year
  Sex: Female

DRUGS (1)
  1. HUMIRA [Suspect]
     Active Substance: ADALIMUMAB
     Indication: Sympathetic ophthalmia
     Dosage: FREQUENCY : EVERY OTHER WEEK;?

REACTIONS (6)
  - Pneumonia [None]
  - Infection [None]
  - Therapy interrupted [None]
  - Eye irritation [None]
  - Dry eye [None]
  - Photophobia [None]
